FAERS Safety Report 23050810 (Version 1)
Quarter: 2023Q4

REPORT INFORMATION
  Report Type: Spontaneous
  Country: BR (occurrence: BR)
  Receive Date: 20231010
  Receipt Date: 20231010
  Transmission Date: 20240110
  Serious: Yes (Other)
  Sender: FDA-Public Use
  Company Number: BR-TAKEDA-2023TUS097317

PATIENT
  Sex: Female

DRUGS (1)
  1. DEXILANT [Suspect]
     Active Substance: DEXLANSOPRAZOLE
     Indication: Erosive duodenitis
     Dosage: UNK UNK, QD
     Route: 048

REACTIONS (8)
  - Tooth disorder [Unknown]
  - Off label use [Unknown]
  - Nervous system disorder [Unknown]
  - Sluggishness [Unknown]
  - Confusional state [Unknown]
  - Asthenia [Unknown]
  - Dyspnoea [Unknown]
  - Feeling abnormal [Unknown]
